FAERS Safety Report 4405791-1 (Version None)
Quarter: 2004Q3

REPORT INFORMATION
  Report Type: 
  Country: None (occurrence: None)
  Receive Date: 20040716
  Receipt Date: 20040705
  Transmission Date: 20050211
  Serious: Yes (Life-Threatening, Hospitalization, Other)
  Sender: FDA-Public Use
  Company Number: FR-JNJFOC-20040605930

PATIENT
  Age: 48 Year
  Sex: Male
  Weight: 72 kg

DRUGS (5)
  1. REMICADE [Suspect]
     Indication: POLYARTERITIS NODOSA
     Dosage: 350 MG, INTRAVENOUS
     Route: 042
  2. CORTICOSTEROIDS (CORTICOSTEROIDS) [Concomitant]
  3. SOLU-MEDROL [Concomitant]
  4. OMEPRAZOLE [Concomitant]
  5. NORADRENALINE (NOREPINEPHRINE) [Concomitant]

REACTIONS (3)
  - CONDITION AGGRAVATED [None]
  - GASTROINTESTINAL HAEMORRHAGE [None]
  - POLYARTERITIS NODOSA [None]
